FAERS Safety Report 23699656 (Version 2)
Quarter: 2024Q2

REPORT INFORMATION
  Report Type: Spontaneous
  Country: GB (occurrence: GB)
  Receive Date: 20240403
  Receipt Date: 20240405
  Transmission Date: 20240715
  Serious: Yes (Other)
  Sender: FDA-Public Use
  Company Number: GB-RELONP-2024SCRC055877

PATIENT
  Sex: Female

DRUGS (1)
  1. IBUPROFEN [Suspect]
     Active Substance: IBUPROFEN
     Indication: Product used for unknown indication
     Dosage: 100 MG/5 ML ORAL SUSPENSION
     Route: 065

REACTIONS (1)
  - Burn oral cavity [Unknown]
